FAERS Safety Report 7460178-2 (Version None)
Quarter: 2011Q2

REPORT INFORMATION
  Report Type: 
  Country: None (occurrence: None)
  Receive Date: 20110505
  Receipt Date: 20110429
  Transmission Date: 20111010
  Serious: Yes (Other)
  Sender: FDA-Public Use
  Company Number: BR-ROCHE-762218

PATIENT
  Sex: Female
  Weight: 47 kg

DRUGS (2)
  1. ROACUTAN [Suspect]
     Indication: ACNE
     Dosage: FREQUENCY: ONE CAPSULE ON ODD DAYS AND TWO CAPSULES ON EVEN DAYS
     Route: 048
     Dates: start: 20110213, end: 20110220
  2. DIANE-35 [Concomitant]
     Dates: start: 20101201

REACTIONS (12)
  - HYPOTENSION [None]
  - NON-CARDIAC CHEST PAIN [None]
  - PAIN IN EXTREMITY [None]
  - ASTHMA [None]
  - DEPRESSION [None]
  - HEADACHE [None]
  - ACTIVITIES OF DAILY LIVING IMPAIRED [None]
  - LIP DRY [None]
  - DYSPNOEA [None]
  - BRONCHITIS [None]
  - CHEST PAIN [None]
  - WEIGHT DECREASED [None]
